FAERS Safety Report 16427789 (Version 1)
Quarter: 2019Q2

REPORT INFORMATION
  Report Type: Spontaneous
  Country: FR (occurrence: FR)
  Receive Date: 20190613
  Receipt Date: 20190613
  Transmission Date: 20190711
  Serious: Yes (Hospitalization)
  Sender: FDA-Public Use
  Company Number: FR-NAPPMUNDI-GBR-2019-0067212

PATIENT
  Sex: Male

DRUGS (1)
  1. OXYNORM [Suspect]
     Active Substance: OXYCODONE HYDROCHLORIDE
     Indication: PRODUCT USED FOR UNKNOWN INDICATION
     Dosage: 180 MG, DAILY
     Route: 048
     Dates: start: 2017, end: 20190516

REACTIONS (4)
  - Drug dependence [Recovering/Resolving]
  - Drug withdrawal syndrome [Recovering/Resolving]
  - Behaviour disorder [Recovering/Resolving]
  - Intentional product misuse [Recovering/Resolving]

NARRATIVE: CASE EVENT DATE: 2018
